FAERS Safety Report 6237692-0 (Version None)
Quarter: 2009Q2

REPORT INFORMATION
  Report Type: 
  Country: None (occurrence: None)
  Receive Date: 20090617
  Receipt Date: 20090605
  Transmission Date: 20091009
  Serious: Yes (Hospitalization, Other)
  Sender: FDA-Public Use
  Company Number: CIPO7000588

PATIENT
  Age: 53 Year
  Sex: Female
  Weight: 96.9 kg

DRUGS (6)
  1. ACTONEL [Suspect]
     Dosage: 35MG WEEKLY (OFF AND ON), ORAL
     Route: 048
     Dates: start: 20040901, end: 20050201
  2. ZOLOFT [Concomitant]
  3. LEVOTHROID [Concomitant]
  4. KEFLEX (CEFALEXIN) TABLET [Concomitant]
  5. WELLBUTRIN [Concomitant]
  6. NEURONTIN [Concomitant]

REACTIONS (46)
  - ANXIETY [None]
  - ARTHRALGIA [None]
  - ASTHENIA [None]
  - BURNING SENSATION [None]
  - BURSA INJURY [None]
  - CANDIDIASIS [None]
  - COMPLEX REGIONAL PAIN SYNDROME [None]
  - CONTUSION [None]
  - DEPRESSION [None]
  - EMOTIONAL DISTRESS [None]
  - FALL [None]
  - FRACTURE MALUNION [None]
  - GROIN PAIN [None]
  - HAEMORRHAGE [None]
  - HEAD INJURY [None]
  - HYPERAEMIA [None]
  - HYPOAESTHESIA [None]
  - IMPAIRED HEALING [None]
  - INCISION SITE ERYTHEMA [None]
  - INCISION SITE HAEMORRHAGE [None]
  - INCISION SITE PAIN [None]
  - INSOMNIA [None]
  - JAW DISORDER [None]
  - JOINT EFFUSION [None]
  - LIGAMENT RUPTURE [None]
  - LIMB DISCOMFORT [None]
  - LIMB INJURY [None]
  - MUSCLE SPASMS [None]
  - MUSCULOSKELETAL DISORDER [None]
  - NODULE ON EXTREMITY [None]
  - OEDEMA [None]
  - OEDEMA PERIPHERAL [None]
  - OSTEONECROSIS [None]
  - PAIN IN EXTREMITY [None]
  - PARAESTHESIA [None]
  - POST PROCEDURAL DRAINAGE [None]
  - PURULENT DISCHARGE [None]
  - RADIUS FRACTURE [None]
  - SKIN DISCOLOURATION [None]
  - SKIN LACERATION [None]
  - STITCH ABSCESS [None]
  - SUICIDAL IDEATION [None]
  - SWELLING FACE [None]
  - TENDONITIS [None]
  - TINEL'S SIGN [None]
  - TRIGGER FINGER [None]
